FAERS Safety Report 9948408 (Version 2)
Quarter: 2014Q1

REPORT INFORMATION
  Report Type: Report from Study
  Country: US (occurrence: US)
  Receive Date: 20140303
  Receipt Date: 20140303
  Transmission Date: 20141002
  Serious: No
  Sender: FDA-Public Use
  Company Number: US-ABBVIE-13P-163-1054153-00

PATIENT
  Sex: Female
  Weight: 68.55 kg

DRUGS (11)
  1. HUMIRA [Suspect]
     Indication: RHEUMATOID ARTHRITIS
     Route: 058
     Dates: start: 20121010
  2. METHOTREXATE [Suspect]
     Indication: RHEUMATOID ARTHRITIS
  3. METHOTREXATE [Suspect]
  4. METHOTREXATE [Suspect]
  5. PREDNISONE [Concomitant]
     Indication: RHEUMATOID ARTHRITIS
  6. LISINOPRIL [Concomitant]
     Indication: HYPERTENSION
  7. LIPITOR [Concomitant]
     Indication: HYPERLIPIDAEMIA
  8. TRAMADOL [Concomitant]
     Indication: RHEUMATOID ARTHRITIS
  9. VALIUM [Concomitant]
     Indication: LICHEN PLANUS
  10. ASPIRIN [Concomitant]
     Indication: COAGULATION FACTOR X LEVEL
  11. ZANTAC [Concomitant]
     Indication: ULCER

REACTIONS (6)
  - Hepatic enzyme increased [Not Recovered/Not Resolved]
  - Pain in extremity [Unknown]
  - Drug ineffective [Not Recovered/Not Resolved]
  - Weight increased [Not Recovered/Not Resolved]
  - Oedema peripheral [Not Recovered/Not Resolved]
  - Arthralgia [Unknown]
